FAERS Safety Report 9960374 (Version 1)
Quarter: 2014Q1

REPORT INFORMATION
  Report Type: Report from Study
  Country: US (occurrence: US)
  Receive Date: 20140305
  Receipt Date: 20140305
  Transmission Date: 20141002
  Serious: No
  Sender: FDA-Public Use
  Company Number: US-ABBVIE-13P-163-1107596-00

PATIENT
  Sex: Male

DRUGS (13)
  1. HUMIRA [Suspect]
     Indication: CROHN^S DISEASE
     Dates: start: 20121117
  2. BALSALAZIDE [Concomitant]
     Indication: PRODUCT USED FOR UNKNOWN INDICATION
  3. POTASSIUM [Concomitant]
     Indication: PRODUCT USED FOR UNKNOWN INDICATION
  4. LOSARTAN [Concomitant]
     Indication: PRODUCT USED FOR UNKNOWN INDICATION
  5. ASPIRIN [Concomitant]
     Indication: PRODUCT USED FOR UNKNOWN INDICATION
  6. MULTIVITAMIN [Concomitant]
     Indication: PRODUCT USED FOR UNKNOWN INDICATION
  7. MULTIVITAMIN [Concomitant]
     Indication: PRODUCT USED FOR UNKNOWN INDICATION
  8. METFORMIN [Concomitant]
     Indication: DIABETES MELLITUS
  9. IRON [Concomitant]
     Indication: IRON DEFICIENCY ANAEMIA
  10. ALLERGY PILL LIKE ZYRTEC [Concomitant]
     Indication: PRODUCT USED FOR UNKNOWN INDICATION
     Dosage: EVERY MORNING
  11. TRAMADOL [Concomitant]
     Indication: ARTHRALGIA
  12. PROVIGIL [Concomitant]
     Indication: CEREBROVASCULAR ACCIDENT
  13. SERTRALINE [Concomitant]
     Indication: CEREBROVASCULAR ACCIDENT

REACTIONS (1)
  - Abdominal distension [Unknown]
